FAERS Safety Report 8583339 (Version 3)
Quarter: 2012Q4

REPORT INFORMATION
  Report Type: Spontaneous
  Country: DE (occurrence: None)
  Receive Date: 20120521
  Receipt Date: 20120814
  Transmission Date: 20130627
  Serious: Yes (Life-Threatening, Hospitalization)
  Sender: FDA-Public Use
  Company Number: 2012HGS-003646

PATIENT
  Age: 34 Year
  Sex: Female

DRUGS (9)
  1. BENLYSTA [Suspect]
     Indication: SYSTEMIC LUPUS ERYTHEMATOSUS
     Dosage: INTRAVENOUS DRIP
     Route: 041
     Dates: start: 20120326, end: 20120326
  2. METHOTREXATE SODIUM [Concomitant]
  3. QUENSYL HYDROXYCHLOROQUINE SULFATE (HYDROXYCHLOROQUINE SULFATE) [Concomitant]
  4. PREDNISOLONE [Concomitant]
  5. FOLSAN (FOLIC ACID) [Concomitant]
  6. PANTOPRAZOLE (PANTOPRAZOLE) [Concomitant]
  7. VALORON N RETARD (VALORON N (NALOXONE HYDROCHLORIDE, TILIDINE HYDROCHLORIDE) [Concomitant]
  8. VIGANTOLETTEN (COLECALCIFEROL) [Concomitant]
  9. ALENDRONATE (ALENDRONATE SODIUM) [Concomitant]

REACTIONS (9)
  - Peripheral vascular disorder [None]
  - Cardiovascular disorder [None]
  - Malaise [None]
  - Hypersensitivity [None]
  - Chills [None]
  - Dizziness [None]
  - Feeling cold [None]
  - Tremor [None]
  - Presyncope [None]
